FAERS Safety Report 5131019-3 (Version None)
Quarter: 2006Q3

REPORT INFORMATION
  Report Type: 
  Country: None (occurrence: None)
  Receive Date: 20060829
  Receipt Date: 20050907
  Transmission Date: 20061208
  Serious: Yes (Hospitalization)
  Sender: FDA-Public Use
  Company Number: CIP05002116

PATIENT
  Age: 42 Year
  Sex: Female

DRUGS (3)
  1. ASACOL [Suspect]
  2. LISINOPRIL [Concomitant]
  3. CARVEDILOL [Concomitant]

REACTIONS (1)
  - PERICARDITIS [None]
